FAERS Safety Report 19992268 (Version 1)
Quarter: 2021Q4

REPORT INFORMATION
  Report Type: Spontaneous
  Country: DE (occurrence: DE)
  Receive Date: 20211025
  Receipt Date: 20211025
  Transmission Date: 20220303
  Serious: Yes (Other)
  Sender: FDA-Public Use
  Company Number: DE-PFIZER INC-202101351901

PATIENT
  Age: 73 Year
  Sex: Female

DRUGS (2)
  1. IBRANCE [Suspect]
     Active Substance: PALBOCICLIB
     Indication: Breast cancer
     Dosage: 125 MG, CYCLIC (3 WEEKS INTAKE, 1 WEEK PAUSE)
     Dates: start: 2018
  2. FASLODEX [Suspect]
     Active Substance: FULVESTRANT
     Indication: Breast cancer
     Dosage: UNK, 1X/MONTH

REACTIONS (7)
  - Polyneuropathy [Unknown]
  - Suicidal ideation [Unknown]
  - Urticaria [Unknown]
  - Visual impairment [Unknown]
  - Gait disturbance [Unknown]
  - Mental disorder [Unknown]
  - Pain [Unknown]
